FAERS Safety Report 5761195-0 (Version None)
Quarter: 2008Q2

REPORT INFORMATION
  Report Type: 
  Country: None (occurrence: None)
  Receive Date: 20080606
  Receipt Date: 20080605
  Transmission Date: 20081010
  Serious: Yes (Disabling)
  Sender: FDA-Public Use
  Company Number: B0523926A

PATIENT
  Age: 75 Year
  Sex: Female

DRUGS (1)
  1. CLENIL [Suspect]
     Indication: WHEEZING
     Route: 055
     Dates: start: 20080406, end: 20080406

REACTIONS (1)
  - RASH PRURITIC [None]
